FAERS Safety Report 16218749 (Version 3)
Quarter: 2019Q3

REPORT INFORMATION
  Report Type: Report from Study
  Country: IT (occurrence: IT)
  Receive Date: 20190419
  Receipt Date: 20190701
  Transmission Date: 20191004
  Serious: Yes (Death)
  Sender: FDA-Public Use
  Company Number: IT-TAKEDA-2019TUS024260

PATIENT
  Age: 56 Year
  Sex: Female

DRUGS (5)
  1. RAMIPRIL. [Concomitant]
     Active Substance: RAMIPRIL
     Dosage: UNK
     Route: 065
  2. KEPPRA [Concomitant]
     Active Substance: LEVETIRACETAM
     Dosage: UNK
     Route: 065
  3. RANITIDINE. [Concomitant]
     Active Substance: RANITIDINE
     Dosage: UNK
     Route: 065
  4. SOLDESAM [Concomitant]
     Active Substance: DEXAMETHASONE
     Dosage: UNK
     Route: 030
  5. BRIGATINIB [Suspect]
     Active Substance: BRIGATINIB
     Indication: ADENOCARCINOMA
     Dosage: 90 MILLIGRAM, QD
     Route: 065
     Dates: start: 20180121, end: 20190301

REACTIONS (1)
  - Neoplasm progression [Fatal]
